FAERS Safety Report 9197603 (Version 1)
Quarter: 2013Q1

REPORT INFORMATION
  Report Type: Spontaneous
  Country: US (occurrence: US)
  Receive Date: 20130328
  Receipt Date: 20130328
  Transmission Date: 20140127
  Serious: Yes (Other)
  Sender: FDA-Public Use
  Company Number: US-BAYER-2013-036775

PATIENT
  Age: 28 Year
  Sex: Female

DRUGS (3)
  1. YAZ [Suspect]
     Dosage: UNK
     Dates: start: 200812, end: 200905
  2. YASMIN [Suspect]
     Dosage: UNK
     Dates: start: 200812, end: 200905
  3. OCELLA [Suspect]
     Dosage: UNK
     Dates: start: 200812, end: 200905

REACTIONS (3)
  - Cholecystitis chronic [None]
  - Injury [None]
  - Pain [None]
